FAERS Safety Report 7427932-4 (Version None)
Quarter: 2011Q2

REPORT INFORMATION
  Report Type: 
  Country: None (occurrence: None)
  Receive Date: 20110421
  Receipt Date: 20101208
  Transmission Date: 20111010
  Serious: Yes (Hospitalization)
  Sender: FDA-Public Use
  Company Number: US-BAYER-201023795NA

PATIENT
  Age: 35 Year
  Sex: Female
  Weight: 84 kg

DRUGS (18)
  1. YASMIN [Suspect]
     Indication: POLYCYSTIC OVARIES
  2. YASMIN [Suspect]
     Indication: OLIGOMENORRHOEA
  3. OCELLA [Suspect]
     Indication: OLIGOMENORRHOEA
  4. ASPIRIN [Concomitant]
  5. ATENOLOL [Concomitant]
     Indication: TACHYCARDIA
  6. LOVAZA [Concomitant]
     Indication: HYPERLIPIDAEMIA
     Dosage: 1 G, BID
  7. BYETTA [Concomitant]
     Indication: INSULIN RESISTANCE
  8. YAZ [Suspect]
     Indication: OLIGOMENORRHOEA
  9. OCELLA [Suspect]
     Indication: OVULATION PAIN
     Route: 048
  10. LOVENOX [Concomitant]
     Indication: PULMONARY EMBOLISM
     Dosage: UNK
     Dates: start: 20091201
  11. YASMIN [Suspect]
     Indication: OVULATION PAIN
     Route: 048
  12. METFORMIN [Concomitant]
     Indication: INSULIN RESISTANCE
     Dosage: UNK
     Dates: end: 20090901
  13. YAZ [Suspect]
     Indication: OVULATION PAIN
     Route: 048
  14. COUMADIN [Concomitant]
     Indication: PULMONARY EMBOLISM
     Dosage: UNK
     Dates: start: 20091201
  15. FLUOXETINE [Concomitant]
  16. YAZ [Suspect]
     Indication: POLYCYSTIC OVARIES
  17. OCELLA [Suspect]
     Indication: POLYCYSTIC OVARIES
  18. NSAID'S [Concomitant]

REACTIONS (2)
  - INJURY [None]
  - PULMONARY EMBOLISM [None]
